FAERS Safety Report 23636388 (Version 2)
Quarter: 2024Q1

REPORT INFORMATION
  Report Type: Spontaneous
  Country: ES (occurrence: ES)
  Receive Date: 20240315
  Receipt Date: 20240318
  Transmission Date: 20240410
  Serious: Yes (Other)
  Sender: FDA-Public Use
  Company Number: None

PATIENT
  Age: 75 Year
  Sex: Male
  Weight: 87 kg

DRUGS (8)
  1. SYNJARDY [Suspect]
     Active Substance: EMPAGLIFLOZIN\METFORMIN HYDROCHLORIDE
     Indication: Diabetes mellitus
     Route: 048
     Dates: start: 20221115, end: 20230417
  2. ATOZET 10 MG/40 MG COMPRIMIDOS RECUBIERTOS CON PELICULA , 30 comprimid [Concomitant]
     Indication: Hypercholesterolaemia
  3. SERETIDE ACCUHALER 50 microgramos/500 microgramos/INHALACI?N, POLVO PA [Concomitant]
     Indication: Chronic obstructive pulmonary disease
     Route: 055
  4. MICTONORM 30 MG CAPSULAS DE LIBERACION MODIFICADA, 28 c?psulas [Concomitant]
     Indication: Product used for unknown indication
     Route: 048
  5. PANTOPRAZOL ALMUS 20 mg COMPRIMIDOS GASTRORRESISTENTES EFG, 28 comprim [Concomitant]
     Indication: Product used for unknown indication
     Route: 048
  6. ASPIRIN [Concomitant]
     Active Substance: ASPIRIN
     Indication: Product used for unknown indication
     Route: 048
  7. AMLODIPINO  ALTER 5 mg COMPRIMIDOS EFG, 30 comprimidos [Concomitant]
     Indication: Hypertension
     Route: 048
  8. EMCONCOR 5 mg COMPRIMIDOS RECUBIERTOS CON PELICULA , 60 comprimidos [Concomitant]
     Indication: Product used for unknown indication

REACTIONS (6)
  - Dysgeusia [Recovering/Resolving]
  - Malaise [Recovered/Resolved]
  - Weight decreased [Recovering/Resolving]
  - Decreased appetite [Not Recovered/Not Resolved]
  - Pruritus [Recovered/Resolved]
  - Urinary tract infection [Recovered/Resolved]

NARRATIVE: CASE EVENT DATE: 20230101
